FAERS Safety Report 8848678 (Version 1)
Quarter: 2012Q4

REPORT INFORMATION
  Report Type: 
  Country: SI (occurrence: SI)
  Receive Date: 20121018
  Receipt Date: 20121018
  Transmission Date: 20130627
  Serious: Yes (Hospitalization)
  Sender: FDA-Public Use
  Company Number: SI-BAYER-2012-105064

PATIENT
  Age: 19 Year
  Sex: Male

DRUGS (1)
  1. CIPROBAY [Suspect]
     Indication: UPPER RESPIRATORY TRACT INFECTION
     Dosage: 500 mg, BID
     Route: 048
     Dates: start: 201102

REACTIONS (7)
  - Cholestatic liver injury [Recovered/Resolved]
  - Jaundice [Recovered/Resolved]
  - Faeces discoloured [Recovered/Resolved]
  - Chromaturia [Recovered/Resolved]
  - Weight decreased [Recovered/Resolved]
  - Hepatomegaly [Recovered/Resolved]
  - Pruritus [Recovered/Resolved]
